FAERS Safety Report 12677584 (Version 2)
Quarter: 2016Q4

REPORT INFORMATION
  Report Type: Spontaneous
  Country: DK (occurrence: DK)
  Receive Date: 20160823
  Receipt Date: 20161101
  Transmission Date: 20170207
  Serious: Yes (Hospitalization)
  Sender: FDA-Public Use
  Company Number: DK-SA-2015SA091644

PATIENT
  Age: 53 Year
  Sex: Female
  Weight: 89 kg

DRUGS (11)
  1. ACETYLSALICYLIC ACID [Concomitant]
     Active Substance: ASPIRIN
     Dates: start: 19950101
  2. ALNOK [Concomitant]
     Active Substance: CETIRIZINE HYDROCHLORIDE
     Indication: HYPERSENSITIVITY
     Dates: start: 2011
  3. ANGICOR [Concomitant]
     Indication: ANGINA PECTORIS
     Dates: start: 2012
  4. IMDUR [Concomitant]
     Active Substance: ISOSORBIDE MONONITRATE
     Indication: ANGINA PECTORIS
     Dates: start: 1999
  5. EMCONCOR [Concomitant]
     Active Substance: BISOPROLOL FUMARATE
  6. ZARATOR [Suspect]
     Active Substance: ATORVASTATIN CALCIUM
     Indication: HYPERCHOLESTEROLAEMIA
     Dosage: STYRKE: 20 MG.
     Route: 048
     Dates: start: 199904
  7. PANTOPRAZOLE [Concomitant]
     Active Substance: PANTOPRAZOLE SODIUM
     Indication: GASTROOESOPHAGEAL REFLUX DISEASE
     Dates: start: 2011
  8. AMLODIPIN [Concomitant]
     Active Substance: AMLODIPINE BESYLATE
     Indication: HYPERTENSION
     Dates: start: 1999
  9. KALEORID [Concomitant]
     Active Substance: POTASSIUM CHLORIDE
     Indication: MINERAL SUPPLEMENTATION
     Dates: start: 2004
  10. PLAVIX [Suspect]
     Active Substance: CLOPIDOGREL BISULFATE
     Indication: THROMBOSIS PROPHYLAXIS
     Dosage: STYRKE: 75 MG.
     Route: 048
     Dates: start: 199904
  11. CENTYL MED KALIUMKLORID [Concomitant]
     Active Substance: BENDROFLUMETHIAZIDE\POTASSIUM CHLORIDE
     Indication: DIURETIC THERAPY
     Dates: start: 1999, end: 20160315

REACTIONS (5)
  - Increased tendency to bruise [Not Recovered/Not Resolved]
  - Haematuria [Unknown]
  - Product substitution issue [Unknown]
  - Paraesthesia [Unknown]
  - Haemorrhagic diathesis [Not Recovered/Not Resolved]

NARRATIVE: CASE EVENT DATE: 2006
